FAERS Safety Report 15963664 (Version 1)
Quarter: 2019Q1

REPORT INFORMATION
  Report Type: Spontaneous
  Country: US (occurrence: US)
  Receive Date: 20190214
  Receipt Date: 20190214
  Transmission Date: 20190417
  Serious: No
  Sender: FDA-Public Use
  Company Number: US-COLLEGIUM PHARMACEUTICAL, INC.-2019CGM00002

PATIENT
  Age: 72 Year
  Sex: Male

DRUGS (1)
  1. XTAMPZA ER [Suspect]
     Active Substance: OXYCODONE
     Dosage: 36 MG, 2X/DAY (EVERY 12 HOURS)

REACTIONS (2)
  - Drug withdrawal syndrome [Not Recovered/Not Resolved]
  - Product dose omission [Not Recovered/Not Resolved]

NARRATIVE: CASE EVENT DATE: 20181226
